FAERS Safety Report 16649051 (Version 1)
Quarter: 2019Q3

REPORT INFORMATION
  Report Type: Report from Study
  Country: US (occurrence: US)
  Receive Date: 20190730
  Receipt Date: 20190730
  Transmission Date: 20191004
  Serious: Yes (Hospitalization, Other)
  Sender: FDA-Public Use
  Company Number: US-ACTELION-A-US2019-193467

PATIENT
  Age: 60 Year
  Sex: Female

DRUGS (10)
  1. CITALOPRAM [Concomitant]
     Active Substance: CITALOPRAM HYDROBROMIDE
  2. FUROSEMIDE. [Concomitant]
     Active Substance: FUROSEMIDE
  3. MVI [Concomitant]
     Active Substance: VITAMINS
  4. THIAMINE MONONITRATE [Concomitant]
     Active Substance: THIAMINE MONONITRATE
  5. OPSUMIT [Suspect]
     Active Substance: MACITENTAN
     Indication: PULMONARY EMBOLISM
     Dosage: 10 MG, QD
     Route: 048
     Dates: start: 201701
  6. FOLIC ACID. [Concomitant]
     Active Substance: FOLIC ACID
  7. SILDENAFIL. [Concomitant]
     Active Substance: SILDENAFIL
  8. CALCIUM CARBONATE. [Concomitant]
     Active Substance: CALCIUM CARBONATE
  9. SPIRONOLACTONE. [Concomitant]
     Active Substance: SPIRONOLACTONE
  10. BUPROPION. [Concomitant]
     Active Substance: BUPROPION

REACTIONS (10)
  - Respiratory failure [Recovering/Resolving]
  - Ammonia increased [Recovering/Resolving]
  - Pneumonia [Recovering/Resolving]
  - Empyema [Recovering/Resolving]
  - Abdominal pain upper [Recovering/Resolving]
  - Delirium tremens [Recovering/Resolving]
  - Chest tube insertion [Recovering/Resolving]
  - Acute kidney injury [Recovering/Resolving]
  - Mental status changes [Recovering/Resolving]
  - Hypoxia [Recovering/Resolving]

NARRATIVE: CASE EVENT DATE: 20190627
